FAERS Safety Report 12469350 (Version 1)
Quarter: 2016Q2

REPORT INFORMATION
  Report Type: Spontaneous
  Country: FR (occurrence: FR)
  Receive Date: 20160615
  Receipt Date: 20160615
  Transmission Date: 20160815
  Serious: Yes (Hospitalization)
  Sender: FDA-Public Use
  Company Number: FR-ASTRAZENECA-2016SE61544

PATIENT
  Age: 56 Year
  Sex: Female

DRUGS (3)
  1. KARDEGIC [Suspect]
     Active Substance: ASPIRIN LYSINE
     Indication: CHEST PAIN
     Dates: start: 20160515, end: 20160519
  2. BRILIQUE [Suspect]
     Active Substance: TICAGRELOR
     Indication: CHEST PAIN
     Route: 048
     Dates: start: 20160515, end: 20160519
  3. ANGIOX [Suspect]
     Active Substance: BIVALIRUDIN
     Indication: CHEST PAIN
     Route: 042
     Dates: start: 20160515, end: 20160515

REACTIONS (7)
  - Nausea [Unknown]
  - Atrial fibrillation [Unknown]
  - Alanine aminotransferase increased [Unknown]
  - Rectal haemorrhage [Not Recovered/Not Resolved]
  - Rectal ulcer [Unknown]
  - Aspartate aminotransferase increased [Unknown]
  - Inflammatory bowel disease [Unknown]

NARRATIVE: CASE EVENT DATE: 20160515
